FAERS Safety Report 8511306-9 (Version None)
Quarter: 2012Q3

REPORT INFORMATION
  Report Type: 
  Country: None (occurrence: None)
  Receive Date: 20120716
  Receipt Date: 20120705
  Transmission Date: 20120928
  Serious: Yes (Hospitalization)
  Sender: FDA-Public Use
  Company Number: FI-BRISTOL-MYERS SQUIBB COMPANY-16743411

PATIENT
  Age: 5 Year
  Sex: Female

DRUGS (2)
  1. ARAVA [Concomitant]
     Dosage: TAB
     Route: 048
     Dates: start: 20110321, end: 20120125
  2. ORENCIA [Suspect]
     Dosage: 160 MG
     Route: 042
     Dates: start: 20111024, end: 20120125

REACTIONS (3)
  - INFLAMMATORY BOWEL DISEASE [None]
  - HYPOALBUMINAEMIA [None]
  - ANAEMIA [None]
